FAERS Safety Report 5718024-0 (Version None)
Quarter: 2008Q2

REPORT INFORMATION
  Report Type: 
  Country: None (occurrence: None)
  Receive Date: 20080425
  Receipt Date: 20080422
  Transmission Date: 20081010
  Serious: Yes (Other)
  Sender: FDA-Public Use
  Company Number: D0056496A

PATIENT
  Sex: Male

DRUGS (2)
  1. ZOVIRAX [Suspect]
     Route: 065
  2. ULTRACAIN [Suspect]
     Route: 065

REACTIONS (2)
  - DRUG INTERACTION [None]
  - SWELLING FACE [None]
